FAERS Safety Report 22357172 (Version 1)
Quarter: 2023Q2

REPORT INFORMATION
  Report Type: Report from Study
  Country: US (occurrence: US)
  Receive Date: 20230524
  Receipt Date: 20230524
  Transmission Date: 20230721
  Serious: Yes (Hospitalization, Other)
  Sender: FDA-Public Use
  Company Number: US-ABBVIE-4773305

PATIENT
  Age: 69 Year
  Sex: Female
  Weight: 57.606 kg

DRUGS (7)
  1. RINVOQ [Suspect]
     Active Substance: UPADACITINIB
     Indication: Rheumatoid arthritis
     Route: 048
     Dates: start: 20210323, end: 202209
  2. RINVOQ [Suspect]
     Active Substance: UPADACITINIB
     Indication: Rheumatoid arthritis
     Route: 048
     Dates: start: 202210
  3. LEVOTHYROXINE [Concomitant]
     Active Substance: LEVOTHYROXINE
     Indication: Product used for unknown indication
  4. PFIZER-BIONTECH COVID-19 VACCINE [Concomitant]
     Active Substance: TOZINAMERAN
     Indication: COVID-19 immunisation
     Dosage: ONCE, FIRST DOSE
     Route: 030
     Dates: start: 20210727, end: 20210727
  5. PFIZER-BIONTECH COVID-19 VACCINE [Concomitant]
     Active Substance: TOZINAMERAN
     Indication: COVID-19 immunisation
     Dosage: ONCE, SECOND DOSE
     Route: 030
     Dates: start: 20210817, end: 20210817
  6. ACETAMINOPHEN\HYDROCODONE [Concomitant]
     Active Substance: ACETAMINOPHEN\HYDROCODONE
     Indication: Product used for unknown indication
     Dates: start: 20220101
  7. ATORVASTATIN [Concomitant]
     Active Substance: ATORVASTATIN
     Indication: Product used for unknown indication
     Dates: start: 20220729

REACTIONS (7)
  - Hypertension [Recovered/Resolved]
  - Atrial flutter [Recovered/Resolved]
  - Oesophagitis [Unknown]
  - Spondylolisthesis [Recovered/Resolved]
  - Hepatic cirrhosis [Not Recovered/Not Resolved]
  - Influenza [Recovered/Resolved]
  - Spinal stenosis [Recovered/Resolved]

NARRATIVE: CASE EVENT DATE: 20220501
